FAERS Safety Report 25764483 (Version 1)
Quarter: 2025Q3

REPORT INFORMATION
  Report Type: Spontaneous
  Country: US (occurrence: US)
  Receive Date: 20250905
  Receipt Date: 20250905
  Transmission Date: 20251021
  Serious: No
  Sender: DOMPE FARMACEUTICI
  Company Number: US-FARMAPROD-202501-0063

PATIENT
  Sex: Female
  Weight: 48.08 kg

DRUGS (13)
  1. OXERVATE [Suspect]
     Active Substance: CENEGERMIN-BKBJ
     Indication: Dry eye
     Route: 047
     Dates: start: 20250105
  2. OXERVATE [Suspect]
     Active Substance: CENEGERMIN-BKBJ
  3. ESTRADIOL [Concomitant]
     Active Substance: ESTRADIOL
  4. GABAPENTIN [Concomitant]
     Active Substance: GABAPENTIN
  5. HYDROXYCHLOROQUINE DIPHOSPHATE [Concomitant]
     Active Substance: HYDROXYCHLOROQUINE DIPHOSPHATE
     Indication: Rheumatoid arthritis
  6. CIMZIA [Concomitant]
     Active Substance: CERTOLIZUMAB PEGOL
  7. PREDNISONE [Concomitant]
     Active Substance: PREDNISONE
  8. PROLIA [Concomitant]
     Active Substance: DENOSUMAB
     Indication: Osteoporosis
  9. CELEBREX [Concomitant]
     Active Substance: CELECOXIB
  10. NORVASC [Concomitant]
     Active Substance: AMLODIPINE BESYLATE
  11. ATENOLOL [Concomitant]
     Active Substance: ATENOLOL
  12. SYSTANE (HYPROMELLOSE 2910 (4000 MPA.S)) [Concomitant]
     Active Substance: HYPROMELLOSE 2910 (4000 MPA.S)
     Indication: Dry eye
  13. AMLODIPINE [Concomitant]
     Active Substance: AMLODIPINE BESYLATE

REACTIONS (17)
  - Eye pain [Not Recovered/Not Resolved]
  - Pain [Unknown]
  - Off label use [Unknown]
  - Dizziness [Not Recovered/Not Resolved]
  - Malaise [Not Recovered/Not Resolved]
  - Vision blurred [Not Recovered/Not Resolved]
  - Nasal dryness [Not Recovered/Not Resolved]
  - Thinking abnormal [Not Recovered/Not Resolved]
  - Headache [Not Recovered/Not Resolved]
  - Fall [Not Recovered/Not Resolved]
  - Weight decreased [Not Recovered/Not Resolved]
  - Ocular hyperaemia [Not Recovered/Not Resolved]
  - Decreased appetite [Not Recovered/Not Resolved]
  - Coccydynia [Not Recovered/Not Resolved]
  - Eye irritation [Not Recovered/Not Resolved]
  - Rhinalgia [Not Recovered/Not Resolved]
  - Visual acuity reduced [Unknown]
